FAERS Safety Report 9812742 (Version 1)
Quarter: 2014Q1

REPORT INFORMATION
  Report Type: Spontaneous
  Country: US (occurrence: US)
  Receive Date: 20140110
  Receipt Date: 20140110
  Transmission Date: 20141002
  Serious: Yes (Other)
  Sender: FDA-Public Use
  Company Number: USRB06168314

PATIENT
  Age: 29 Year
  Sex: Female

DRUGS (3)
  1. MUCINEX FAST MAX LIQUID SEVERE COLD [Suspect]
     Indication: PRODUCT USED FOR UNKNOWN INDICATION
     Route: 048
     Dates: start: 20131227
  2. MUCINEX FAST MAX LIQUID SEVERE COLD [Suspect]
     Indication: PRODUCT USED FOR UNKNOWN INDICATION
     Route: 048
     Dates: start: 20131227
  3. VITAMINS [Concomitant]
     Indication: PRODUCT USED FOR UNKNOWN INDICATION

REACTIONS (3)
  - Vaginal haemorrhage [Unknown]
  - Swelling face [Unknown]
  - Urticaria [Unknown]
